FAERS Safety Report 17117730 (Version 1)
Quarter: 2019Q4

REPORT INFORMATION
  Report Type: Spontaneous
  Country: FR (occurrence: FR)
  Receive Date: 20191205
  Receipt Date: 20191205
  Transmission Date: 20200122
  Serious: Yes (Hospitalization)
  Sender: FDA-Public Use
  Company Number: FR-MYLANLABS-2019M1119286

PATIENT
  Age: 91 Year
  Sex: Female
  Weight: 49 kg

DRUGS (1)
  1. ISOPTINE 40 MG, COMPRIM? ENROB? [Suspect]
     Active Substance: VERAPAMIL HYDROCHLORIDE
     Indication: SINUS TACHYCARDIA
     Dosage: 1 DOSAGE FORM, QD
     Route: 048
     Dates: end: 20180417

REACTIONS (2)
  - Fall [Recovered/Resolved with Sequelae]
  - Electrocardiogram QT prolonged [Unknown]

NARRATIVE: CASE EVENT DATE: 20180417
